FAERS Safety Report 24771963 (Version 2)
Quarter: 2024Q4

REPORT INFORMATION
  Report Type: Spontaneous
  Country: US (occurrence: US)
  Receive Date: 20241224
  Receipt Date: 20241228
  Transmission Date: 20250115
  Serious: No
  Sender: SANOFI AVENTIS
  Company Number: US-SANOFI-02342151

PATIENT
  Sex: Male

DRUGS (1)
  1. ADMELOG [Suspect]
     Active Substance: INSULIN LISPRO
     Indication: Diabetes mellitus
     Dosage: 9 - 14 UNITS UP TO FOUR TIMES DAILY
     Route: 065
     Dates: start: 2017

REACTIONS (2)
  - Extra dose administered [Unknown]
  - Drug ineffective [Unknown]
